FAERS Safety Report 4514099-5 (Version None)
Quarter: 2004Q4

REPORT INFORMATION
  Report Type: 
  Country: None (occurrence: None)
  Receive Date: 20041130
  Receipt Date: 20040930
  Transmission Date: 20050328
  Serious: Yes (Other)
  Sender: FDA-Public Use
  Company Number: PHFR2004GB03634

PATIENT
  Age: 72 Year
  Sex: Male

DRUGS (10)
  1. TEGRETOL [Suspect]
     Indication: EPILEPSY
     Dosage: 400 MG, BID
     Route: 048
     Dates: start: 20020802
  2. BENDROFLUAZIDE [Suspect]
     Dosage: 20.5UG/DAY
     Route: 065
     Dates: start: 20040924, end: 20040926
  3. CETIRIZINE HCL [Concomitant]
     Dosage: 10MG/DAY
     Route: 048
     Dates: start: 20041011
  4. TEMAZEPAM [Concomitant]
     Dosage: 10MG/DAY
     Route: 048
     Dates: start: 19951107
  5. WARFARIN [Concomitant]
     Dosage: VARIES
     Route: 048
     Dates: start: 19960109
  6. CANDESARTAN [Concomitant]
     Dosage: 16MG/DAY
     Route: 048
     Dates: start: 20010919
  7. NIZATIDINE [Concomitant]
     Dosage: 15 MG, BID
     Route: 048
     Dates: start: 19951107
  8. BECOTIDE [Concomitant]
     Dosage: UNK, BID
     Route: 065
     Dates: start: 20040227
  9. SIMVASTATIN [Concomitant]
     Dosage: 40MG/DAY
     Route: 048
     Dates: start: 20041011
  10. QUININE [Concomitant]
     Dosage: 300 MG
     Dates: start: 20010522

REACTIONS (3)
  - ANTICONVULSANT DRUG LEVEL INCREASED [None]
  - DRUG LEVEL INCREASED [None]
  - GRAND MAL CONVULSION [None]
